FAERS Safety Report 18284604 (Version 6)
Quarter: 2023Q1

REPORT INFORMATION
  Report Type: Report from Study
  Country: US (occurrence: US)
  Receive Date: 20200918
  Receipt Date: 20230306
  Transmission Date: 20230418
  Serious: Yes (Hospitalization, Other)
  Sender: FDA-Public Use
  Company Number: US-SHIRE-US202030185

PATIENT
  Age: 29 Year
  Sex: Female

DRUGS (1)
  1. VON WILLEBRAND FACTOR HUMAN [Suspect]
     Active Substance: VON WILLEBRAND FACTOR HUMAN
     Indication: Product used for unknown indication
     Dosage: 3000 INTERNATIONAL UNIT, 2/WEEK
     Route: 042

REACTIONS (5)
  - COVID-19 [Unknown]
  - Epistaxis [Unknown]
  - Mouth haemorrhage [Unknown]
  - Postpartum haemorrhage [Unknown]
  - Gingival bleeding [Unknown]

NARRATIVE: CASE EVENT DATE: 20200908
